FAERS Safety Report 6241902-3 (Version None)
Quarter: 2009Q2

REPORT INFORMATION
  Report Type: 
  Country: None (occurrence: None)
  Receive Date: 20090623
  Receipt Date: 20090611
  Transmission Date: 20091009
  Serious: Yes (Other)
  Sender: FDA-Public Use
  Company Number: DE-PFIZER INC-2009225639

PATIENT

DRUGS (9)
  1. TOVIAZ [Suspect]
     Indication: MICTURITION URGENCY
     Dosage: 4 MG, 1X/DAY
     Route: 048
     Dates: start: 20090610
  2. CARVEDILOL [Concomitant]
  3. CARMEN [Concomitant]
  4. BLOPRESS [Concomitant]
  5. TORASEMIDE [Concomitant]
  6. EZETROL [Concomitant]
  7. PANTOZOL [Concomitant]
  8. ALLOPURINOL [Concomitant]
  9. TIMOMANN [Concomitant]

REACTIONS (1)
  - HAEMATOCHEZIA [None]
